FAERS Safety Report 7704675-0 (Version None)
Quarter: 2011Q3

REPORT INFORMATION
  Report Type: 
  Country: None (occurrence: None)
  Receive Date: 20110823
  Receipt Date: 20110812
  Transmission Date: 20111222
  Serious: Yes (Hospitalization)
  Sender: FDA-Public Use
  Company Number: DK-JNJFOC-20110309273

PATIENT
  Sex: Female
  Weight: 70 kg

DRUGS (1)
  1. REMICADE [Suspect]
     Indication: ACCIDENTAL EXPOSURE
     Route: 050
     Dates: start: 20110307, end: 20110307

REACTIONS (3)
  - ACCIDENTAL EXPOSURE [None]
  - HYPERSENSITIVITY [None]
  - DYSPNOEA [None]
